FAERS Safety Report 18575603 (Version 1)
Quarter: 2020Q4

REPORT INFORMATION
  Report Type: Spontaneous
  Country: US (occurrence: US)
  Receive Date: 20201202
  Receipt Date: 20201202
  Transmission Date: 20210114
  Serious: Yes (Hospitalization)
  Sender: FDA-Public Use
  Company Number: None

PATIENT
  Age: 93 Year
  Sex: Male
  Weight: 76 kg

DRUGS (1)
  1. DOXYCYCLINE HYCLATE 100MG CAP/TAB [Suspect]
     Active Substance: DOXYCYCLINE HYCLATE
     Indication: PNEUMONIA
     Dates: start: 20200915, end: 20200925

REACTIONS (3)
  - Dyspepsia [None]
  - Oesophageal irritation [None]
  - Chest pain [None]

NARRATIVE: CASE EVENT DATE: 20201020
